FAERS Safety Report 5208566-9 (Version None)
Quarter: 2006Q4

REPORT INFORMATION
  Report Type: 
  Country: None (occurrence: None)
  Receive Date: 20061027
  Receipt Date: 20060703
  Transmission Date: 20070319
  Serious: Yes (Other)
  Sender: FDA-Public Use
  Company Number: HQWYE592705JUL06

PATIENT
  Age: 66 Year
  Sex: Female
  Weight: 62.65 kg

DRUGS (10)
  1. PREMARIN [Suspect]
     Indication: HORMONE REPLACEMENT THERAPY
     Dosage: 1.25 MG 1X PER 1 DAY, ORAL
     Route: 048
     Dates: start: 19760101, end: 20000101
  2. COLCHICINE (COLCHICINE) [Concomitant]
  3. ASPIRIN [Concomitant]
  4. PREVACID [Concomitant]
  5. ATENOLOL [Concomitant]
  6. PLAVIX [Concomitant]
  7. K-DUR 10 [Concomitant]
  8. LASIX [Concomitant]
  9. ZOCOR [Concomitant]
  10. ALLOPURINOL [Concomitant]

REACTIONS (1)
  - DEEP VEIN THROMBOSIS [None]
